FAERS Safety Report 7589330-2 (Version None)
Quarter: 2011Q2

REPORT INFORMATION
  Report Type: 
  Country: None (occurrence: None)
  Receive Date: 20110603
  Receipt Date: 20110328
  Transmission Date: 20111010
  Serious: No
  Sender: FDA-Public Use
  Company Number: 2011SP014144

PATIENT

DRUGS (5)
  1. CLONAZEPAM [Concomitant]
  2. SAPHRIS [Suspect]
     Indication: BIPOLAR I DISORDER
     Dosage: 10 MG;BID;SL
     Route: 060
     Dates: start: 20110201
  3. WELLBUTRIN [Concomitant]
  4. TRAZODONE HCL [Concomitant]
  5. CARDIZEM [Concomitant]

REACTIONS (1)
  - AGEUSIA [None]
